FAERS Safety Report 5673974-9 (Version None)
Quarter: 2008Q1

REPORT INFORMATION
  Report Type: 
  Country: None (occurrence: None)
  Receive Date: 20080317
  Receipt Date: 20080305
  Transmission Date: 20080703
  Serious: Yes (Other)
  Sender: FDA-Public Use
  Company Number: 18686

PATIENT
  Age: 5 Year
  Sex: Male

DRUGS (3)
  1. CARBOPLATIN [Suspect]
     Dosage: 1200 MG/M2 TOTAL
  2. ETOPOSIDE [Suspect]
     Dosage: 800 MG/M2 TOTAL
  3. MELPHALAN [Suspect]
     Dosage: 180 MG/M2 TOTAL

REACTIONS (1)
  - CRYPTOGENIC ORGANISING PNEUMONIA [None]
